FAERS Safety Report 4321045-6 (Version None)
Quarter: 2004Q1

REPORT INFORMATION
  Report Type: 
  Country: None (occurrence: None)
  Receive Date: 20040315
  Receipt Date: 20030730
  Transmission Date: 20041129
  Serious: Yes (Hospitalization, Other)
  Sender: FDA-Public Use
  Company Number: PHEH2003US06684

PATIENT
  Age: 28 Year
  Sex: Female

DRUGS (6)
  1. TRILEPTAL [Suspect]
     Indication: CONVULSION
     Dosage: 300 MG, BID, ORAL
     Route: 048
     Dates: start: 20030703, end: 20030728
  2. LORAZEPAM [Concomitant]
  3. HALIDOL [Concomitant]
  4. RISPERDAL [Concomitant]
  5. OLANZAPINE [Concomitant]
  6. CAFFEINE [Concomitant]

REACTIONS (2)
  - CONVULSION [None]
  - DELUSION [None]
